FAERS Safety Report 18210615 (Version 1)
Quarter: 2020Q3

REPORT INFORMATION
  Report Type: Spontaneous
  Country: US (occurrence: US)
  Receive Date: 20200829
  Receipt Date: 20200829
  Transmission Date: 20201103
  Serious: No
  Sender: FDA-Public Use
  Company Number: US-TEVA-2020-US-1820803

PATIENT
  Sex: Male

DRUGS (3)
  1. ALPHAGAN P [Concomitant]
     Active Substance: BRIMONIDINE TARTRATE
     Route: 065
  2. CIPROFLOXACIN. [Suspect]
     Active Substance: CIPROFLOXACIN
     Route: 061
  3. AZOPT [Concomitant]
     Active Substance: BRINZOLAMIDE
     Route: 065

REACTIONS (3)
  - Product package associated injury [Unknown]
  - Product packaging issue [Unknown]
  - Eye pain [Unknown]
